FAERS Safety Report 18433851 (Version 1)
Quarter: 2020Q4

REPORT INFORMATION
  Report Type: Spontaneous
  Country: FR (occurrence: FR)
  Receive Date: 20201027
  Receipt Date: 20201027
  Transmission Date: 20210114
  Serious: Yes (Death, Hospitalization)
  Sender: FDA-Public Use
  Company Number: FR-PFIZER INC-2020414035

PATIENT
  Age: 79 Year
  Sex: Female
  Weight: 87 kg

DRUGS (4)
  1. DAPTOMYCINE [Interacting]
     Active Substance: DAPTOMYCIN
     Indication: STAPHYLOCOCCAL INFECTION
     Dosage: 700 MG, 1X/DAY
     Route: 042
     Dates: start: 20200730, end: 20200810
  2. RIFADINE [RIFAMPICIN SODIUM] [Interacting]
     Active Substance: RIFAMPIN SODIUM
     Indication: STAPHYLOCOCCAL INFECTION
     Dosage: 600 MG, 1X/DAY
     Route: 041
     Dates: start: 20200731, end: 20200810
  3. ATORVASTATIN CALCIUM. [Suspect]
     Active Substance: ATORVASTATIN CALCIUM
     Dosage: 80 MG, 1X/DAY
     Route: 048
     Dates: start: 20200717
  4. FENOFIBRATE. [Interacting]
     Active Substance: FENOFIBRATE
     Dosage: 100 MG, 1X/DAY
     Route: 048
     Dates: start: 20200217

REACTIONS (3)
  - Rhabdomyolysis [Recovered/Resolved]
  - Drug interaction [Recovered/Resolved]
  - Death [Fatal]

NARRATIVE: CASE EVENT DATE: 20200809
